FAERS Safety Report 11238601 (Version 1)
Quarter: 2015Q3

REPORT INFORMATION
  Report Type: Spontaneous
  Country: US (occurrence: US)
  Receive Date: 20150706
  Receipt Date: 20150706
  Transmission Date: 20151125
  Serious: Yes (Other)
  Sender: FDA-Public Use
  Company Number: US-ROCHE-1598708

PATIENT
  Age: 77 Year
  Sex: Male

DRUGS (3)
  1. DIAZEPAM. [Suspect]
     Active Substance: DIAZEPAM
     Dosage: DOSE REDUCED
     Route: 030
  2. DIAZEPAM. [Suspect]
     Active Substance: DIAZEPAM
     Indication: TETANUS
     Route: 030
  3. CHLORPROMAZINE. [Concomitant]
     Active Substance: CHLORPROMAZINE
     Indication: TETANUS
     Route: 030

REACTIONS (1)
  - Locked-in syndrome [Recovered/Resolved]
